FAERS Safety Report 4718347-8 (Version None)
Quarter: 2005Q3

REPORT INFORMATION
  Report Type: 
  Country: None (occurrence: None)
  Receive Date: 20050720
  Receipt Date: 20050708
  Transmission Date: 20060218
  Serious: Yes (Hospitalization)
  Sender: FDA-Public Use
  Company Number: CH-JNJFOC-20050701940

PATIENT
  Age: 13 Year
  Sex: Male
  Weight: 54 kg

DRUGS (16)
  1. RISPERDAL [Suspect]
     Indication: DISTURBANCE IN ATTENTION
     Route: 048
     Dates: start: 20020101, end: 20050515
  2. DAUNORUBICIN HCL [Interacting]
     Dosage: CYCLIC THERAPY
     Dates: start: 20050509, end: 20050512
  3. OMEPRAZOLE [Concomitant]
     Dosage: LONG TERM USE
     Route: 048
  4. ZOFRAN [Concomitant]
  5. ENDOXAN [Concomitant]
  6. ASPARAGINASE [Concomitant]
  7. PURINETHOL [Concomitant]
  8. METHOTREXATE [Concomitant]
  9. COTRIMOXAZOL [Concomitant]
  10. COTRIMOXAZOL [Concomitant]
  11. CYTOSAR [Concomitant]
  12. DEXAMETHASONE [Concomitant]
  13. ONCOVIN [Concomitant]
  14. MERONEM [Concomitant]
  15. TEICOPLANIN [Concomitant]
  16. RASBURICASE [Concomitant]

REACTIONS (3)
  - DRUG INTERACTION [None]
  - ELECTROCARDIOGRAM QT PROLONGED [None]
  - SINUS BRADYCARDIA [None]
